FAERS Safety Report 7602211-0 (Version None)
Quarter: 2011Q3

REPORT INFORMATION
  Report Type: 
  Country: None (occurrence: None)
  Receive Date: 20110711
  Receipt Date: 20110630
  Transmission Date: 20111222
  Serious: Yes (Hospitalization)
  Sender: FDA-Public Use
  Company Number: US-AMGEN-USASP2011025980

PATIENT
  Age: 69 Year
  Sex: Female
  Weight: 89.3 kg

DRUGS (1)
  1. ENBREL [Suspect]
     Indication: RHEUMATOID ARTHRITIS
     Dosage: 50 MG, QWK
     Dates: start: 20040301

REACTIONS (3)
  - FALL [None]
  - CONCUSSION [None]
  - LACERATION [None]
